FAERS Safety Report 11121768 (Version 1)
Quarter: 2015Q2

REPORT INFORMATION
  Report Type: Spontaneous
  Country: US (occurrence: None)
  Receive Date: 20150518
  Receipt Date: 20150518
  Transmission Date: 20150821
  Serious: Yes (Disabling, Other)
  Sender: FDA-Public Use
  Company Number: None

PATIENT
  Age: 56 Year
  Sex: Female
  Weight: 68.04 kg

DRUGS (3)
  1. LORAZEPAM. [Concomitant]
     Active Substance: LORAZEPAM
  2. BOTOX [Suspect]
     Active Substance: ONABOTULINUMTOXINA
     Indication: MIGRAINE
     Dosage: 200ML, INJECTIONS, EVERY 3 MONTHS
     Dates: start: 2013, end: 20150428
  3. PHENEGRAN [Concomitant]

REACTIONS (10)
  - Gait disturbance [None]
  - Malaise [None]
  - Balance disorder [None]
  - Cerebrovascular accident [None]
  - Tinnitus [None]
  - Head discomfort [None]
  - Eye disorder [None]
  - Fall [None]
  - Vision blurred [None]
  - Hemiparesis [None]

NARRATIVE: CASE EVENT DATE: 20150428
